FAERS Safety Report 12448498 (Version 1)
Quarter: 2016Q2

REPORT INFORMATION
  Report Type: Report from Study
  Country: CA (occurrence: CA)
  Receive Date: 20160608
  Receipt Date: 20160608
  Transmission Date: 20160815
  Serious: Yes (Death)
  Sender: FDA-Public Use
  Company Number: CA-009507513-1606CAN003078

PATIENT
  Sex: Female
  Weight: 76 kg

DRUGS (1)
  1. PEMBROLIZUMAB. [Suspect]
     Active Substance: PEMBROLIZUMAB
     Indication: MALIGNANT MELANOMA
     Dosage: 166 MG, Q3W, STRENGTH 2MG/KG
     Route: 042
     Dates: start: 20150812

REACTIONS (1)
  - Death [Fatal]
